FAERS Safety Report 4816968-5 (Version None)
Quarter: 2005Q3

REPORT INFORMATION
  Report Type: 
  Country: None (occurrence: None)
  Receive Date: 20050929
  Receipt Date: 20050616
  Transmission Date: 20060218
  Serious: No
  Sender: FDA-Public Use
  Company Number: 05P-163-0303356

PATIENT
  Age: 57 Year
  Sex: Female
  Weight: 53.978 kg

DRUGS (10)
  1. HUMIRA [Suspect]
     Indication: RHEUMATOID ARTHRITIS
     Dosage: 40 MG, 1 IN 2 WK, SUBCUTANEOUS
     Route: 058
     Dates: start: 20040901
  2. CYPROHEPTADINE HYDROCHLORIDE [Concomitant]
  3. METHOTREXATE [Concomitant]
  4. FOLIC ACID [Concomitant]
  5. HYDROCHLOROTHIAZIDE [Concomitant]
  6. PREDNISONE [Concomitant]
  7. FLUOXETINE [Concomitant]
  8. POTASSIUM [Concomitant]
  9. OMEPRAZOLE [Concomitant]
  10. CALCIUM WITH VITAMIN D [Concomitant]

REACTIONS (3)
  - CARPAL TUNNEL SYNDROME [None]
  - JOINT STIFFNESS [None]
  - MONARTHRITIS [None]
